FAERS Safety Report 6861871-2 (Version None)
Quarter: 2010Q3

REPORT INFORMATION
  Report Type: 
  Country: None (occurrence: None)
  Receive Date: 20100721
  Receipt Date: 20100715
  Transmission Date: 20110219
  Serious: No
  Sender: FDA-Public Use
  Company Number: 2009BI020419

PATIENT
  Age: 47 Year
  Sex: Male

DRUGS (1)
  1. TYSABRI [Suspect]
     Indication: MULTIPLE SCLEROSIS
     Route: 042
     Dates: start: 20090301, end: 20090909

REACTIONS (16)
  - ABDOMINAL PAIN UPPER [None]
  - AMNESIA [None]
  - ANXIETY [None]
  - ASTHENIA [None]
  - BALANCE DISORDER [None]
  - CHEST PAIN [None]
  - DIARRHOEA [None]
  - DYSPNOEA [None]
  - FALL [None]
  - FEELING HOT [None]
  - GASTRIC DISORDER [None]
  - HEADACHE [None]
  - MALAISE [None]
  - PAIN [None]
  - VOMITING [None]
  - WALKING AID USER [None]
